FAERS Safety Report 6782342-8 (Version None)
Quarter: 2010Q2

REPORT INFORMATION
  Report Type: 
  Country: None (occurrence: None)
  Receive Date: 20100621
  Receipt Date: 20100611
  Transmission Date: 20101027
  Serious: Yes (Other)
  Sender: FDA-Public Use
  Company Number: US-JNJFOC-20100500692

PATIENT
  Age: 20 Month
  Sex: Male

DRUGS (8)
  1. CHILDREN'S MOTRIN [Suspect]
     Route: 048
  2. CHILDREN'S MOTRIN [Suspect]
     Indication: PYREXIA
     Route: 048
  3. CONCENTRATED MOTRIN INFANTS DROPS [Suspect]
     Route: 048
  4. CONCENTRATED MOTRIN INFANTS DROPS [Suspect]
     Indication: PYREXIA
     Route: 048
  5. CONCENTRATED TYLENOL INFANT DROPS [Suspect]
     Route: 048
  6. CONCENTRATED TYLENOL INFANT DROPS [Suspect]
     Indication: PYREXIA
     Route: 048
  7. CONCENTRATED TYLENOL INFANT DROPS [Suspect]
     Route: 048
  8. CONCENTRATED TYLENOL INFANT DROPS [Suspect]
     Indication: PYREXIA
     Route: 048

REACTIONS (4)
  - FEBRILE CONVULSION [None]
  - LOSS OF CONSCIOUSNESS [None]
  - PRODUCT QUALITY ISSUE [None]
  - RESPIRATORY ARREST [None]
